FAERS Safety Report 17802788 (Version 1)
Quarter: 2020Q2

REPORT INFORMATION
  Report Type: Spontaneous
  Country: US (occurrence: US)
  Receive Date: 20200519
  Receipt Date: 20200519
  Transmission Date: 20200714
  Serious: No
  Sender: FDA-Public Use
  Company Number: US-LEO PHARMA-329582

PATIENT
  Age: 63 Year
  Sex: Female

DRUGS (1)
  1. PICATO [Suspect]
     Active Substance: INGENOL MEBUTATE
     Indication: ACTINIC KERATOSIS
     Route: 061

REACTIONS (6)
  - Application site discharge [Recovered/Resolved]
  - Incorrect dose administered [Unknown]
  - Application site discomfort [Recovered/Resolved]
  - Application site dryness [Recovered/Resolved]
  - Inappropriate schedule of product administration [Unknown]
  - Application site pain [Recovered/Resolved]
